FAERS Safety Report 12859810 (Version 1)
Quarter: 2016Q4

REPORT INFORMATION
  Report Type: Spontaneous
  Country: US (occurrence: US)
  Receive Date: 20161018
  Receipt Date: 20161018
  Transmission Date: 20170207
  Serious: Yes (Hospitalization)
  Sender: FDA-Public Use
  Company Number: None

PATIENT
  Age: 57 Year
  Sex: Female
  Weight: 95.8 kg

DRUGS (3)
  1. TEMOZOLOMIDE. [Suspect]
     Active Substance: TEMOZOLOMIDE
     Dates: end: 20160912
  2. RITUXIMAB (MOAB C2B8 ANTI CD20, CHIMERIC) [Suspect]
     Active Substance: RITUXIMAB
     Dates: end: 20160919
  3. METHOTREXATE. [Suspect]
     Active Substance: METHOTREXATE
     Dates: end: 20160909

REACTIONS (9)
  - Hypotension [None]
  - Pulmonary congestion [None]
  - Alanine aminotransferase abnormal [None]
  - Pneumocystis jirovecii pneumonia [None]
  - Disorientation [None]
  - Hypoxia [None]
  - Pleural effusion [None]
  - Blood alkaline phosphatase abnormal [None]
  - Aspartate aminotransferase abnormal [None]

NARRATIVE: CASE EVENT DATE: 20161002
